FAERS Safety Report 11108623 (Version 3)
Quarter: 2016Q1

REPORT INFORMATION
  Report Type: Report from Study
  Country: US (occurrence: US)
  Receive Date: 20150513
  Receipt Date: 20160310
  Transmission Date: 20160525
  Serious: No
  Sender: FDA-Public Use
  Company Number: US-AMGEN-USASL2015045702

PATIENT
  Age: 60 Year
  Sex: Female

DRUGS (2)
  1. ENBREL [Suspect]
     Active Substance: ETANERCEPT
     Indication: ANKYLOSING SPONDYLITIS
     Dosage: 50 MG, ONCE WEEKLY
     Route: 065
     Dates: start: 20150227
  2. ENBREL [Suspect]
     Active Substance: ETANERCEPT
     Dosage: UNK UNK, UNK
     Route: 065

REACTIONS (7)
  - Pyrexia [Unknown]
  - Rib fracture [Unknown]
  - Back disorder [Not Recovered/Not Resolved]
  - Back pain [Unknown]
  - Fall [Unknown]
  - Discomfort [Unknown]
  - Neck pain [Unknown]

NARRATIVE: CASE EVENT DATE: 2015
